FAERS Safety Report 10229766 (Version 1)
Quarter: 2014Q2

REPORT INFORMATION
  Report Type: Report from Study
  Country: US (occurrence: US)
  Receive Date: 20140611
  Receipt Date: 20140611
  Transmission Date: 20141212
  Serious: Yes (Other)
  Sender: FDA-Public Use
  Company Number: PHEH2014US011586

PATIENT
  Sex: Male
  Weight: 64.4 kg

DRUGS (6)
  1. GILENYA [Suspect]
     Indication: MULTIPLE SCLEROSIS
     Dosage: 0.5 MG, QD
     Route: 048
     Dates: start: 201103
  2. METFORMIN HYDROCHLORIDE [Concomitant]
  3. TERFENADINE [Concomitant]
     Dosage: 60 MG, UNK
  4. LAMICTAL [Concomitant]
     Dosage: 150 MG, UNK
  5. NOVOLOG [Concomitant]
     Dosage: 100 U/ML, UNK
  6. LANTUS [Concomitant]
     Dosage: 100 U/ML, UNK

REACTIONS (5)
  - Prostate cancer [Unknown]
  - Dementia [Unknown]
  - Personality change [Unknown]
  - Mood altered [Unknown]
  - Weight decreased [Unknown]
